FAERS Safety Report 7046464-9 (Version None)
Quarter: 2010Q4

REPORT INFORMATION
  Report Type: 
  Country: None (occurrence: None)
  Receive Date: 20101014
  Receipt Date: 20101007
  Transmission Date: 20110411
  Serious: Yes (Other)
  Sender: FDA-Public Use
  Company Number: US-US-EMD SERONO, INC.-7018933

PATIENT
  Sex: Female

DRUGS (2)
  1. REBIF [Suspect]
     Indication: PRODUCT USED FOR UNKNOWN INDICATION
     Route: 058
     Dates: start: 20100319
  2. TYLENOL [Concomitant]
     Indication: PREMEDICATION

REACTIONS (4)
  - CYSTITIS [None]
  - LIVER FUNCTION TEST ABNORMAL [None]
  - THROMBOSIS [None]
  - ULCER [None]
